FAERS Safety Report 5151777-1 (Version None)
Quarter: 2006Q4

REPORT INFORMATION
  Report Type: 
  Country: None (occurrence: None)
  Receive Date: 20061107
  Receipt Date: 20061017
  Transmission Date: 20070319
  Serious: Yes (Death)
  Sender: FDA-Public Use
  Company Number: WAES 0610NLD00034

PATIENT
  Sex: 0

DRUGS (2)
  1. CANCIDAS [Suspect]
     Indication: ASPERGILLOSIS
  2. ITRACONAZOLE [Concomitant]

REACTIONS (2)
  - ASPERGILLOSIS [None]
  - DRUG INEFFECTIVE [None]
